FAERS Safety Report 10753718 (Version 1)
Quarter: 2015Q1

REPORT INFORMATION
  Report Type: Spontaneous
  Country: CA (occurrence: None)
  Receive Date: 20150129
  Receipt Date: 20150129
  Transmission Date: 20150721
  Serious: Yes (Death)
  Sender: FDA-Public Use
  Company Number: COR_00238_2015

PATIENT
  Age: 32 Month
  Sex: Male

DRUGS (6)
  1. THIOTEPA (THIOTEPA) [Suspect]
     Active Substance: THIOTEPA
     Indication: ATYPICAL TERATOID/RHABDOID TUMOUR OF CNS
     Dosage: (10 MG, [PER DAY, FOR 2 DAYS ON DAYS -3 AND -2 BEFORE SCT, FOR 3 CYCLES])
  2. METHOTREXATE [Concomitant]
     Active Substance: METHOTREXATE
  3. CYCLOPHOSPHAMIDE. [Concomitant]
     Active Substance: CYCLOPHOSPHAMIDE
  4. VINCRISTINE [Concomitant]
     Active Substance: VINCRISTINE
  5. CARBOPLATIN. [Suspect]
     Active Substance: CARBOPLATIN
     Indication: ATYPICAL TERATOID/RHABDOID TUMOUR OF CNS
     Dosage: (17 MG/KG, [PER DAY, FOR 2 DAYS, FOR 3 CYCLES, GIVEN PRIOR TO SCT])
  6. CISPLATIN. [Concomitant]
     Active Substance: CISPLATIN

REACTIONS (2)
  - Pulmonary arterial hypertension [None]
  - Cardiac failure congestive [None]
